FAERS Safety Report 12207021 (Version 1)
Quarter: 2016Q1

REPORT INFORMATION
  Report Type: Spontaneous
  Country: US (occurrence: US)
  Receive Date: 20160324
  Receipt Date: 20160324
  Transmission Date: 20160526
  Serious: No
  Sender: FDA-Public Use
  Company Number: US-JNJFOC-20160222783

PATIENT
  Sex: Female
  Weight: 56.25 kg

DRUGS (2)
  1. UNSPECIFIED FENTANYL TRANSDERMAL PATCH [Suspect]
     Active Substance: FENTANYL CITRATE
     Indication: GASTROINTESTINAL PAIN
     Route: 062
  2. UNSPECIFIED FENTANYL TRANSDERMAL PATCH [Suspect]
     Active Substance: FENTANYL CITRATE
     Indication: GASTROINTESTINAL PAIN
     Route: 062
     Dates: start: 201601, end: 201601

REACTIONS (3)
  - Burning sensation [Recovered/Resolved]
  - Pain in extremity [Recovered/Resolved]
  - Pruritus [Recovered/Resolved]
